FAERS Safety Report 23326305 (Version 1)
Quarter: 2023Q4

REPORT INFORMATION
  Report Type: Spontaneous
  Country: US (occurrence: None)
  Receive Date: 20231220
  Receipt Date: 20231220
  Transmission Date: 20240109
  Serious: Yes (Death)
  Sender: FDA-Public Use
  Company Number: None

PATIENT
  Age: 84 Year
  Sex: Male

DRUGS (1)
  1. PIRFENIDONE [Suspect]
     Active Substance: PIRFENIDONE
     Dosage: OTHER FREQUENCY : 1CAP3DAY2CAP3DAY;?
     Dates: start: 202208

REACTIONS (1)
  - Death [None]

NARRATIVE: CASE EVENT DATE: 20231209
